FAERS Safety Report 24931448 (Version 1)
Quarter: 2025Q1

REPORT INFORMATION
  Report Type: Report from Study
  Country: US (occurrence: US)
  Receive Date: 20250205
  Receipt Date: 20250205
  Transmission Date: 20250408
  Serious: No
  Sender: AURINIA PHARMACEUTICALS
  Company Number: US-AURINIA PHARMACEUTICALS INC.-AUR-007524

PATIENT
  Age: 23 Year
  Sex: Female

DRUGS (1)
  1. LUPKYNIS [Suspect]
     Active Substance: VOCLOSPORIN
     Indication: Lupus nephritis
     Dosage: 23.7 MILLIGRAM, QD
     Route: 048
     Dates: start: 20241220

REACTIONS (7)
  - Stress [Unknown]
  - Urine abnormality [Unknown]
  - Menstrual discomfort [Unknown]
  - Blood urine present [Unknown]
  - Weight increased [Unknown]
  - Treatment noncompliance [Unknown]
  - Underdose [Unknown]

NARRATIVE: CASE EVENT DATE: 20241101
